FAERS Safety Report 5487959-9 (Version None)
Quarter: 2007Q4

REPORT INFORMATION
  Report Type: 
  Country: None (occurrence: None)
  Receive Date: 20071001
  Receipt Date: 20070516
  Transmission Date: 20080405
  Serious: Yes (Other)
  Sender: FDA-Public Use
  Company Number: 200711537BWH

PATIENT
  Age: 66 Year
  Sex: Female

DRUGS (4)
  1. CIPRO [Suspect]
     Indication: BRONCHITIS
     Dosage: 500 MG, TOTAL DAILY, ORAL; 750 MG, TOTAL DAILY, ORAL
     Route: 048
  2. CIPRO [Suspect]
     Indication: BRONCHITIS
     Dosage: 500 MG, TOTAL DAILY, ORAL; 750 MG, TOTAL DAILY, ORAL
     Route: 048
  3. CHOLESTEROL MEDICATION [Concomitant]
  4. BUDESONIDE [Concomitant]

REACTIONS (4)
  - ABASIA [None]
  - OEDEMA PERIPHERAL [None]
  - PAIN IN EXTREMITY [None]
  - TENDON RUPTURE [None]
